FAERS Safety Report 5946802-1 (Version None)
Quarter: 2008Q4

REPORT INFORMATION
  Report Type: 
  Country: None (occurrence: None)
  Receive Date: 20081021
  Receipt Date: 20080505
  Transmission Date: 20090506
  Serious: Yes (Other)
  Sender: FDA-Public Use
  Company Number: HQWYE033127FEB06

PATIENT
  Age: 62 Year
  Sex: Female

DRUGS (12)
  1. PREMARIN [Suspect]
     Indication: MENOPAUSE
     Dosage: SEE IMAGE
     Dates: start: 19890101
  2. PREMARIN [Suspect]
     Indication: PROPHYLAXIS
     Dosage: SEE IMAGE
     Dates: start: 19890101
  3. PREMARIN [Suspect]
     Indication: MENOPAUSE
     Dosage: SEE IMAGE
     Dates: start: 19900101
  4. PREMARIN [Suspect]
     Indication: PROPHYLAXIS
     Dosage: SEE IMAGE
     Dates: start: 19900101
  5. PREMARIN [Suspect]
     Indication: MENOPAUSE
     Dosage: SEE IMAGE
     Dates: start: 19960101
  6. PREMARIN [Suspect]
     Indication: PROPHYLAXIS
     Dosage: SEE IMAGE
     Dates: start: 19960101
  7. PREMARIN [Suspect]
     Indication: MENOPAUSE
     Dosage: SEE IMAGE
     Dates: start: 19990101
  8. PREMARIN [Suspect]
     Indication: PROPHYLAXIS
     Dosage: SEE IMAGE
     Dates: start: 19990101
  9. CYCRIN [Suspect]
  10. ESTRATEST [Suspect]
  11. MEDROXYPROGESTERONE [Suspect]
  12. PROVERA [Suspect]

REACTIONS (1)
  - BREAST CANCER [None]
